FAERS Safety Report 8834728 (Version 3)
Quarter: 2013Q1

REPORT INFORMATION
  Report Type: Spontaneous
  Country: UA (occurrence: None)
  Receive Date: 20121009
  Receipt Date: 20121101
  Transmission Date: 20140127
  Serious: Yes (Hospitalization)
  Sender: FDA-Public Use
  Company Number: 2012AT000704

PATIENT
  Age: 63 Year
  Sex: Male
  Weight: 91 kg

DRUGS (17)
  1. ALPROSTADIL [Suspect]
     Indication: PERIPHERAL ISCHAEMIA
     Route: 042
     Dates: start: 20120826, end: 20120922
  2. ANALGESICS [Concomitant]
  3. BUPIVACAINE [Concomitant]
  4. TRAMADOL [Concomitant]
  5. HEART [Concomitant]
  6. ROSUVASTATIN [Concomitant]
  7. NEBILET [Concomitant]
  8. VEROSPIRON [Concomitant]
  9. POVIDONE-IODINE [Concomitant]
  10. UNKNOWN DRUG FOR DIABETES MELLITUS [Concomitant]
  11. OFLOXACIN [Concomitant]
  12. MEROPENEM [Concomitant]
  13. AMIKACIN [Concomitant]
  14. DEXALGIN [Concomitant]
  15. CARDIOMAGNYL [Concomitant]
  16. HUMADOR R [Concomitant]
  17. HUMADOR B [Concomitant]

REACTIONS (10)
  - Skin ulcer [None]
  - Skin necrosis [None]
  - Toe amputation [None]
  - Postoperative wound complication [None]
  - Peripheral ischaemia [None]
  - Condition aggravated [None]
  - Procedural pain [None]
  - Pulse pressure decreased [None]
  - Angina pectoris [None]
  - Myocardial ischaemia [None]
